FAERS Safety Report 20169271 (Version 1)
Quarter: 2021Q4

REPORT INFORMATION
  Report Type: Spontaneous
  Country: NO (occurrence: NO)
  Receive Date: 20211210
  Receipt Date: 20211210
  Transmission Date: 20220303
  Serious: Yes (Other)
  Sender: FDA-Public Use
  Company Number: None

PATIENT
  Age: 73 Year
  Sex: Female

DRUGS (20)
  1. AMLODIPINE [Suspect]
     Active Substance: AMLODIPINE BESYLATE
     Indication: Hypertension
     Dosage: 5 MG
     Route: 048
     Dates: start: 20211007
  2. CANDESARTAN [Suspect]
     Active Substance: CANDESARTAN
     Indication: Hypertension
     Dosage: 1 TABLET DAILY
     Route: 048
     Dates: start: 20211013
  3. SERINE PHOSPHATE [Concomitant]
  4. TIMOLOL MALEATE\TRAVOPROST [Concomitant]
     Active Substance: TIMOLOL MALEATE\TRAVOPROST
     Dosage: TIMOLOL STRENGTH: 5 MG AND TRAVOPROST STRENGTH:40 MICROGRAM, 1 DROP IN EACH EYE X 1
     Route: 047
  5. ACETAMINOPHEN [Concomitant]
     Active Substance: ACETAMINOPHEN
     Indication: Pain
     Dosage: 1 TABLET UP TO 3 TIMES DAILY
     Route: 048
  6. HERBALS\TURMERIC [Concomitant]
     Active Substance: HERBALS\TURMERIC
     Dosage: TAKEN AS NEEDED
  7. MENAQUINONE 6 [Concomitant]
     Active Substance: MENAQUINONE 6
  8. PANTOPRAZOLE SODIUM [Concomitant]
     Active Substance: PANTOPRAZOLE SODIUM
     Indication: Prophylaxis against gastrointestinal ulcer
     Dosage: 1 TABLET DAILY
     Route: 048
     Dates: start: 20211031
  9. ZOPICLONE [Concomitant]
     Active Substance: ZOPICLONE
     Indication: Sleep disorder
     Dosage: STRENGTH: 3.75 MG, 1 TABLET WHEN NEEDED
     Route: 048
  10. CALANUS OIL [Concomitant]
  11. ESTRADIOL VALERATE\MEDROXYPROGESTERONE ACETATE [Concomitant]
     Active Substance: ESTRADIOL VALERATE\MEDROXYPROGESTERONE ACETATE
     Indication: Hormone replacement therapy
     Dosage: 1 TABLET DAILY
     Route: 048
  12. METOPROLOL TARTRATE [Concomitant]
     Active Substance: METOPROLOL TARTRATE
     Indication: Hypertension
     Dosage: 1 TABLET DAILY
     Route: 048
  13. XARELTO [Concomitant]
     Active Substance: RIVAROXABAN
     Indication: Thrombosis prophylaxis
     Dosage: 1 TABLET DAILY
     Route: 048
  14. TAMBOCOR [Concomitant]
     Active Substance: FLECAINIDE ACETATE
     Indication: Cardiac disorder
     Dosage: 1 TABLET DAILY
     Route: 048
  15. BRINZOLAMIDE, BRIMONIDINE [Concomitant]
     Dosage: 1 DROP X 2
     Route: 047
  16. Flutide [Concomitant]
     Indication: Asthma
     Dosage: STRENGTH: 250 MICROGRAM, 1 MORNING AND EVENING
     Route: 055
     Dates: start: 20210928
  17. ARCOXIA [Concomitant]
     Active Substance: ETORICOXIB
     Indication: Arthralgia
     Dosage: 1 TABLET DAILY IN PERIODS WHEN NEEDED (MINIMAL USE)
     Route: 048
  18. ALBUTEROL [Concomitant]
     Active Substance: ALBUTEROL
     Indication: Asthma
     Dosage: STRENGTH: 0.1 MG, 1-2 DOSES UP TO 4 TIMES A DAY WHEN NEEDED
     Route: 055
  19. MELATONIN [Concomitant]
     Active Substance: MELATONIN
     Indication: Sleep disorder
     Dosage: 1 TABLET FOR THE EVENING
     Route: 048
  20. COLLAGEN [Concomitant]
     Active Substance: COLLAGEN

REACTIONS (4)
  - Deafness unilateral [Not Recovered/Not Resolved]
  - Dizziness [Recovering/Resolving]
  - Tinnitus [Not Recovered/Not Resolved]
  - Vomiting [Recovering/Resolving]

NARRATIVE: CASE EVENT DATE: 20211023
